FAERS Safety Report 4806616-2 (Version None)
Quarter: 2005Q4

REPORT INFORMATION
  Report Type: 
  Country: None (occurrence: None)
  Receive Date: 20051021
  Receipt Date: 20051010
  Transmission Date: 20060501
  Serious: Yes (Hospitalization)
  Sender: FDA-Public Use
  Company Number: BR-JNJFOC-20051003131

PATIENT
  Age: 23 Year
  Sex: Female

DRUGS (10)
  1. TYLENOL (CAPLET) [Suspect]
  2. TYLENOL (CAPLET) [Suspect]
     Indication: SUICIDE ATTEMPT
  3. DICLOFENAC [Suspect]
     Indication: SUICIDE ATTEMPT
  4. ATROPA BELLADONA [Suspect]
     Indication: SUICIDE ATTEMPT
  5. PAPAVERINE [Suspect]
     Indication: SUICIDE ATTEMPT
  6. HYOSCYAMUS [Suspect]
     Indication: SUICIDE ATTEMPT
  7. BOLDUS BOLDUS [Suspect]
     Indication: SUICIDE ATTEMPT
  8. ILLICIUM VERUM [Suspect]
     Indication: SUICIDE ATTEMPT
  9. HOOKER FILIUS [Suspect]
     Indication: SUICIDE ATTEMPT
  10. HYDRALCOHOLIC VEHICLE [Suspect]
     Indication: SUICIDE ATTEMPT

REACTIONS (5)
  - INTENTIONAL DRUG MISUSE [None]
  - MENTAL IMPAIRMENT [None]
  - MULTIPLE DRUG OVERDOSE [None]
  - SUICIDE ATTEMPT [None]
  - TREMOR [None]
